FAERS Safety Report 6255393-X (Version None)
Quarter: 2009Q3

REPORT INFORMATION
  Report Type: 
  Country: None (occurrence: None)
  Receive Date: 20090702
  Receipt Date: 20090625
  Transmission Date: 20100115
  Serious: Yes (Hospitalization)
  Sender: FDA-Public Use
  Company Number: US-ABBOTT-09P-163-0582128-00

PATIENT
  Sex: Female

DRUGS (12)
  1. SIMCOR [Suspect]
     Indication: HIGH DENSITY LIPOPROTEIN DECREASED
     Dosage: 500/20MG QHS
     Route: 048
     Dates: start: 20090604
  2. SIMCOR [Suspect]
     Dosage: 500/20MG QHS
     Route: 048
     Dates: start: 20090101
  3. LEVAQUIN [Interacting]
     Indication: DRUG USE FOR UNKNOWN INDICATION
  4. BLOOD PRESSURE MEDICATION [Interacting]
     Indication: DRUG USE FOR UNKNOWN INDICATION
  5. ALPRAZOLOM [Concomitant]
     Indication: DRUG USE FOR UNKNOWN INDICATION
  6. DIAZIDE [Concomitant]
     Indication: DRUG USE FOR UNKNOWN INDICATION
  7. ATENOLOL [Concomitant]
     Indication: DRUG USE FOR UNKNOWN INDICATION
  8. M.V.I. [Concomitant]
     Indication: DRUG USE FOR UNKNOWN INDICATION
  9. CALCIUM/MAGNESIUM/ZINC [Concomitant]
     Indication: DRUG USE FOR UNKNOWN INDICATION
  10. ALEVE [Concomitant]
     Indication: DRUG USE FOR UNKNOWN INDICATION
  11. EXCEDRIN [Concomitant]
     Indication: DRUG USE FOR UNKNOWN INDICATION
  12. ASPIRIN [Concomitant]
     Indication: DRUG USE FOR UNKNOWN INDICATION
     Route: 048

REACTIONS (4)
  - DRUG INTERACTION [None]
  - HYPERTENSION [None]
  - NAUSEA [None]
  - TEMPERATURE INTOLERANCE [None]
